FAERS Safety Report 24684426 (Version 5)
Quarter: 2025Q2

REPORT INFORMATION
  Report Type: Spontaneous
  Country: CA (occurrence: CA)
  Receive Date: 20241202
  Receipt Date: 20250619
  Transmission Date: 20250716
  Serious: Yes (Death, Life-Threatening, Hospitalization, Disabling, Congenital Anomaly, Other)
  Sender: Haleon PLC
  Company Number: CA-002147023-NVSC2024CA181557

PATIENT
  Age: 43 Year
  Sex: Female

DRUGS (103)
  1. VOLTAREN [Suspect]
     Active Substance: DICLOFENAC SODIUM
     Indication: Product used for unknown indication
  2. COSENTYX [Suspect]
     Active Substance: SECUKINUMAB
     Indication: Psoriatic arthropathy
  3. COSENTYX [Suspect]
     Active Substance: SECUKINUMAB
     Indication: Rheumatoid arthritis
  4. COSENTYX [Suspect]
     Active Substance: SECUKINUMAB
     Indication: Product used for unknown indication
  5. METHOTREXATE [Suspect]
     Active Substance: METHOTREXATE
     Indication: Rheumatoid arthritis
     Route: 048
  6. METHOTREXATE [Suspect]
     Active Substance: METHOTREXATE
  7. METHOTREXATE [Suspect]
     Active Substance: METHOTREXATE
  8. METHOTREXATE [Suspect]
     Active Substance: METHOTREXATE
     Route: 048
  9. METHOTREXATE [Suspect]
     Active Substance: METHOTREXATE
  10. METHOTREXATE [Suspect]
     Active Substance: METHOTREXATE
  11. METHOTREXATE [Suspect]
     Active Substance: METHOTREXATE
  12. METHOTREXATE [Suspect]
     Active Substance: METHOTREXATE
  13. METHOTREXATE [Suspect]
     Active Substance: METHOTREXATE
     Route: 048
  14. METHOTREXATE [Suspect]
     Active Substance: METHOTREXATE
     Route: 048
  15. METHOTREXATE [Suspect]
     Active Substance: METHOTREXATE
     Route: 048
  16. METHOTREXATE [Suspect]
     Active Substance: METHOTREXATE
     Route: 048
  17. METHOTREXATE [Suspect]
     Active Substance: METHOTREXATE
     Route: 048
  18. METHOTREXATE [Suspect]
     Active Substance: METHOTREXATE
  19. METHOTREXATE [Suspect]
     Active Substance: METHOTREXATE
  20. METHOTREXATE [Suspect]
     Active Substance: METHOTREXATE
     Route: 048
  21. METHOTREXATE [Suspect]
     Active Substance: METHOTREXATE
     Route: 048
  22. METHOTREXATE [Suspect]
     Active Substance: METHOTREXATE
  23. METHOTREXATE [Suspect]
     Active Substance: METHOTREXATE
     Route: 048
  24. METHOTREXATE [Suspect]
     Active Substance: METHOTREXATE
     Route: 048
  25. METHOTREXATE [Suspect]
     Active Substance: METHOTREXATE
  26. METHOTREXATE [Suspect]
     Active Substance: METHOTREXATE
  27. METHOTREXATE [Suspect]
     Active Substance: METHOTREXATE
     Route: 048
  28. METHOTREXATE [Suspect]
     Active Substance: METHOTREXATE
  29. METHOTREXATE [Suspect]
     Active Substance: METHOTREXATE
     Route: 048
  30. METHOTREXATE [Suspect]
     Active Substance: METHOTREXATE
     Route: 048
  31. METHOTREXATE [Suspect]
     Active Substance: METHOTREXATE
     Route: 058
  32. METHOTREXATE [Suspect]
     Active Substance: METHOTREXATE
     Route: 048
  33. METHOTREXATE [Suspect]
     Active Substance: METHOTREXATE
     Route: 058
  34. METHOTREXATE [Suspect]
     Active Substance: METHOTREXATE
     Route: 058
  35. METHOTREXATE [Suspect]
     Active Substance: METHOTREXATE
     Route: 048
  36. METHOTREXATE [Suspect]
     Active Substance: METHOTREXATE
     Route: 048
  37. METHOTREXATE [Suspect]
     Active Substance: METHOTREXATE
     Route: 048
  38. METHOTREXATE [Suspect]
     Active Substance: METHOTREXATE
  39. METHOTREXATE [Suspect]
     Active Substance: METHOTREXATE
     Route: 048
  40. METHOTREXATE [Suspect]
     Active Substance: METHOTREXATE
  41. METHOTREXATE [Suspect]
     Active Substance: METHOTREXATE
     Route: 048
  42. OXYCODONE [Suspect]
     Active Substance: OXYCODONE
     Indication: Product used for unknown indication
  43. RITUXIMAB [Suspect]
     Active Substance: RITUXIMAB
     Indication: Rheumatoid arthritis
     Route: 058
  44. RITUXIMAB [Suspect]
     Active Substance: RITUXIMAB
  45. RITUXIMAB [Suspect]
     Active Substance: RITUXIMAB
  46. RITUXIMAB [Suspect]
     Active Substance: RITUXIMAB
  47. RITUXIMAB [Suspect]
     Active Substance: RITUXIMAB
  48. RITUXIMAB [Suspect]
     Active Substance: RITUXIMAB
     Route: 043
  49. RITUXIMAB [Suspect]
     Active Substance: RITUXIMAB
  50. RITUXIMAB [Suspect]
     Active Substance: RITUXIMAB
  51. RITUXIMAB [Suspect]
     Active Substance: RITUXIMAB
  52. COSENTYX [Concomitant]
     Active Substance: SECUKINUMAB
     Indication: Product used for unknown indication
  53. ERELZI [Suspect]
     Active Substance: ETANERCEPT-SZZS
     Indication: Rheumatoid arthritis
  54. ERELZI [Suspect]
     Active Substance: ETANERCEPT-SZZS
     Route: 058
  55. ATOMOXETINE HYDROCHLORIDE [Suspect]
     Active Substance: ATOMOXETINE HYDROCHLORIDE
     Indication: Migraine
  56. ATOMOXETINE HYDROCHLORIDE [Suspect]
     Active Substance: ATOMOXETINE HYDROCHLORIDE
  57. ETANERCEPT [Concomitant]
     Active Substance: ETANERCEPT
     Indication: Product used for unknown indication
  58. DICLOFENAC SODIUM [Suspect]
     Active Substance: DICLOFENAC SODIUM
     Indication: Product used for unknown indication
  59. DICLOFENAC SODIUM [Suspect]
     Active Substance: DICLOFENAC SODIUM
  60. HYDROCORTISONE [Suspect]
     Active Substance: HYDROCORTISONE
     Indication: Rheumatoid arthritis
  61. AIMOVIG [Suspect]
     Active Substance: ERENUMAB-AOOE
     Indication: Migraine
  62. ALENDRONIC ACID [Suspect]
     Active Substance: ALENDRONIC ACID
     Indication: Rheumatoid arthritis
  63. ALENDRONIC ACID [Suspect]
     Active Substance: ALENDRONIC ACID
     Route: 048
  64. ALENDRONIC ACID [Suspect]
     Active Substance: ALENDRONIC ACID
     Route: 016
  65. ALENDRONIC ACID [Suspect]
     Active Substance: ALENDRONIC ACID
     Route: 048
  66. ALENDRONIC ACID [Suspect]
     Active Substance: ALENDRONIC ACID
     Route: 016
  67. LEFLUNOMIDE [Suspect]
     Active Substance: LEFLUNOMIDE
     Indication: Rheumatoid arthritis
  68. LEFLUNOMIDE [Suspect]
     Active Substance: LEFLUNOMIDE
     Route: 048
  69. LEFLUNOMIDE [Suspect]
     Active Substance: LEFLUNOMIDE
     Route: 048
  70. LEFLUNOMIDE [Suspect]
     Active Substance: LEFLUNOMIDE
  71. LEFLUNOMIDE [Suspect]
     Active Substance: LEFLUNOMIDE
     Route: 048
  72. LEFLUNOMIDE [Suspect]
     Active Substance: LEFLUNOMIDE
  73. LEFLUNOMIDE [Suspect]
     Active Substance: LEFLUNOMIDE
  74. LEFLUNOMIDE [Suspect]
     Active Substance: LEFLUNOMIDE
  75. VOLTAREN [Suspect]
     Active Substance: DICLOFENAC SODIUM
     Indication: Product used for unknown indication
  76. VOLTAREN [Suspect]
     Active Substance: DICLOFENAC SODIUM
  77. VOLTAREN [Suspect]
     Active Substance: DICLOFENAC SODIUM
  78. OXYCODONE HYDROCHLORIDE [Suspect]
     Active Substance: OXYCODONE HYDROCHLORIDE
     Indication: Product used for unknown indication
  79. MYCOPHENOLATE MOFETIL [Suspect]
     Active Substance: MYCOPHENOLATE MOFETIL
     Indication: Product used for unknown indication
  80. FOLIC ACID [Suspect]
     Active Substance: FOLIC ACID
     Indication: Rheumatoid arthritis
     Route: 048
  81. FOLIC ACID [Suspect]
     Active Substance: FOLIC ACID
  82. FOLIC ACID [Suspect]
     Active Substance: FOLIC ACID
  83. FOLIC ACID [Suspect]
     Active Substance: FOLIC ACID
     Route: 048
  84. FOLIC ACID [Suspect]
     Active Substance: FOLIC ACID
     Route: 048
  85. FOLIC ACID [Suspect]
     Active Substance: FOLIC ACID
  86. FOLIC ACID [Suspect]
     Active Substance: FOLIC ACID
     Route: 048
  87. FOLIC ACID [Suspect]
     Active Substance: FOLIC ACID
  88. FOLIC ACID [Suspect]
     Active Substance: FOLIC ACID
  89. FOLIC ACID [Suspect]
     Active Substance: FOLIC ACID
  90. FOLIC ACID [Suspect]
     Active Substance: FOLIC ACID
  91. FOLIC ACID [Suspect]
     Active Substance: FOLIC ACID
  92. FOLIC ACID [Suspect]
     Active Substance: FOLIC ACID
     Route: 058
  93. FOLIC ACID [Suspect]
     Active Substance: FOLIC ACID
     Route: 048
  94. FOLIC ACID [Suspect]
     Active Substance: FOLIC ACID
  95. FOLIC ACID [Suspect]
     Active Substance: FOLIC ACID
     Route: 048
  96. FOLIC ACID [Suspect]
     Active Substance: FOLIC ACID
  97. ADALIMUMAB [Suspect]
     Active Substance: ADALIMUMAB
     Indication: Rheumatoid arthritis
     Route: 058
  98. ADALIMUMAB [Suspect]
     Active Substance: ADALIMUMAB
  99. ADALIMUMAB [Suspect]
     Active Substance: ADALIMUMAB
     Route: 058
  100. CANDESARTAN [Suspect]
     Active Substance: CANDESARTAN
     Indication: Migraine
     Route: 048
  101. QUETIAPINE FUMARATE [Suspect]
     Active Substance: QUETIAPINE FUMARATE
     Indication: Product used for unknown indication
  102. OXYCODONE TEREPHTHALATE [Suspect]
     Active Substance: OXYCODONE TEREPHTHALATE
     Indication: Product used for unknown indication
  103. ERELZI [Concomitant]
     Active Substance: ETANERCEPT-SZZS
     Indication: Product used for unknown indication

REACTIONS (24)
  - Pulmonary fibrosis [Fatal]
  - Musculoskeletal pain [Fatal]
  - Impaired healing [Fatal]
  - Facet joint syndrome [Fatal]
  - Lung disorder [Fatal]
  - Dyspepsia [Fatal]
  - Irritable bowel syndrome [Fatal]
  - Lower limb fracture [Fatal]
  - Muscle spasms [Fatal]
  - Lower respiratory tract infection [Fatal]
  - Prescribed overdose [Fatal]
  - Road traffic accident [Fatal]
  - Gait inability [Fatal]
  - Incorrect route of product administration [Fatal]
  - Lip dry [Fatal]
  - Inflammation [Fatal]
  - Dry mouth [Fatal]
  - Oedema [Fatal]
  - Muscle injury [Fatal]
  - Hypercholesterolaemia [Fatal]
  - Folliculitis [Fatal]
  - Hypoaesthesia [Fatal]
  - Abdominal pain upper [Fatal]
  - Prescribed underdose [Fatal]
